FAERS Safety Report 6493906-3 (Version None)
Quarter: 2009Q4

REPORT INFORMATION
  Report Type: 
  Country: None (occurrence: None)
  Receive Date: 20091214
  Receipt Date: 20081120
  Transmission Date: 20100525
  Serious: No
  Sender: FDA-Public Use
  Company Number: US-BRISTOL-MYERS SQUIBB COMPANY-14414650

PATIENT
  Age: 55 Year
  Sex: Female

DRUGS (11)
  1. ABILIFY [Suspect]
     Indication: BIPOLAR DISORDER
     Dosage: DOSE DECREASED TO 5MG
     Dates: start: 20080801
  2. ABILIFY [Suspect]
     Indication: POST-TRAUMATIC STRESS DISORDER
     Dosage: DOSE DECREASED TO 5MG
     Dates: start: 20080801
  3. WELLBUTRIN [Concomitant]
  4. FLUOXETINE [Concomitant]
  5. TRAZODONE HCL [Concomitant]
  6. KLONOPIN [Concomitant]
  7. LAMICTAL [Concomitant]
  8. BENADRYL [Concomitant]
  9. IMITREX [Concomitant]
  10. CALCIUM + VITAMIN D [Concomitant]
  11. ESTER-C [Concomitant]

REACTIONS (1)
  - TARDIVE DYSKINESIA [None]
